FAERS Safety Report 4967199-X (Version None)
Quarter: 2006Q2

REPORT INFORMATION
  Report Type: 
  Country: None (occurrence: None)
  Receive Date: 20060410
  Receipt Date: 20050926
  Transmission Date: 20061013
  Serious: Yes (Hospitalization)
  Sender: FDA-Public Use
  Company Number: US-KINGPHARMUSA00001-K200501252

PATIENT
  Age: 89 Year
  Sex: Female

DRUGS (5)
  1. ALTACE [Suspect]
     Indication: CARDIOVASCULAR DISORDER
     Dosage: 1.25 MG, QD
     Route: 048
     Dates: start: 20041030, end: 20050101
  2. SPIROFUR [Suspect]
     Indication: CARDIOVASCULAR DISORDER
     Dosage: ONE-HALF TABLET, QD
     Route: 048
     Dates: start: 20041030, end: 20050514
  3. SPIROFUR [Suspect]
     Dosage: ONE TABLET, QOD
     Route: 048
     Dates: start: 20040418, end: 20041030
  4. CORDARONE [Suspect]
     Indication: CARDIOVASCULAR DISORDER
     Dosage: ONE TABLET, QD
     Route: 048
     Dates: start: 20041030, end: 20050101
  5. ASPIRIN [Suspect]
     Indication: CARDIOVASCULAR DISORDER
     Dosage: ONE-HALF TABLET, QD
     Route: 048

REACTIONS (10)
  - AORTIC VALVE STENOSIS [None]
  - ASTHENIA [None]
  - BALANCE DISORDER [None]
  - BLOOD CREATININE INCREASED [None]
  - BLOOD POTASSIUM INCREASED [None]
  - BLOOD THYROID STIMULATING HORMONE INCREASED [None]
  - HYPOTHYROIDISM [None]
  - THYROXINE DECREASED [None]
  - TREMOR [None]
  - TRI-IODOTHYRONINE DECREASED [None]
